FAERS Safety Report 7576658-5 (Version None)
Quarter: 2011Q2

REPORT INFORMATION
  Report Type: 
  Country: None (occurrence: None)
  Receive Date: 20110628
  Receipt Date: 20091217
  Transmission Date: 20111010
  Serious: Yes (Death, Hospitalization, Other)
  Sender: FDA-Public Use
  Company Number: US-BAYER-200943017NA

PATIENT
  Age: 65 Year
  Sex: Female
  Weight: 77 kg

DRUGS (34)
  1. MIDODRINE HYDROCHLORIDE [Concomitant]
     Dosage: 10 MG (PRIOR TO DIALYSIS)
     Route: 048
  2. PROTONIX [Concomitant]
     Dosage: 40 MG, UNK
     Route: 048
  3. ACETAMINOPHEN [Concomitant]
     Dosage: UNK UNK, PRN
     Route: 048
  4. INSULIN [Concomitant]
     Dosage: 250 U, UNK
     Route: 042
     Dates: start: 20070615
  5. SODIUM NITROPRUSSIDE [Concomitant]
     Dosage: 50 MG, UNK
     Route: 042
     Dates: start: 20070615
  6. PHENYLEPHRINE HCL [Concomitant]
     Dosage: 10 MG, UNK
     Route: 042
     Dates: start: 20070615
  7. ALBUMIN (HUMAN) [Concomitant]
     Dosage: 1000 ML, UNK
     Route: 042
     Dates: start: 20070615
  8. RED BLOOD CELLS [Concomitant]
     Dosage: 300 ML, UNK
     Route: 042
     Dates: start: 20070615, end: 20070615
  9. PLASMALYTE [GLUCOSE,POTASSIUM CHLORIDE] [Concomitant]
     Dosage: 1000 ML, UNK
     Route: 042
     Dates: start: 20070615, end: 20070615
  10. HEPARIN [Concomitant]
     Dosage: 18 ML, UNK
     Route: 042
     Dates: start: 20070615
  11. DIGOXIN [Concomitant]
     Dosage: 0.125 MG (TUESDAY, THURSDAY, SATURDAY)
     Route: 048
  12. RENAGEL [Concomitant]
     Dosage: 800 MG, UNK
     Route: 048
  13. COUMADIN [Concomitant]
     Dosage: 4 MG, QHS (MONDAY, TUESDAY, WEDNESDAY, AND SUNDAY)
     Route: 048
  14. PROTAMINE SULFATE [Concomitant]
     Dosage: 50 MG, UNK
     Route: 042
     Dates: start: 20070615
  15. FAMOTIDINE [Concomitant]
     Dosage: 20 MG, UNK
     Route: 042
     Dates: start: 20070615
  16. EPHEDRINE [Concomitant]
     Dosage: 100 MG, UNK
     Route: 042
     Dates: start: 20070615
  17. CALCIUM CHLORIDE [Concomitant]
     Dosage: 1 G, UNK
     Route: 042
     Dates: start: 20070615
  18. TRAMADOL HCL [Concomitant]
     Dosage: 50 MG, PRN
     Route: 048
  19. FENTANYL [Concomitant]
     Dosage: 2000 MCG
     Route: 042
     Dates: start: 20070615
  20. VASOPRESSIN [Concomitant]
     Dosage: 60 U, UNK
     Route: 042
     Dates: start: 20070615
  21. TRASYLOL [Suspect]
     Indication: VASCULAR INJURY
     Dosage: UNK (LOADING DOSE)
     Route: 042
     Dates: start: 20070615, end: 20070615
  22. LYRICA [Concomitant]
     Dosage: 25 MG (EVEN DAYS)
     Route: 048
  23. COUMADIN [Concomitant]
     Dosage: 2 MG, QHS (THURSDAY AND SATURDAY)
     Route: 048
  24. COMBIVENT [Concomitant]
     Dosage: 2 PUFFS, TID (INHALANT)
     Route: 055
  25. ADVAIR DISKUS 100/50 [Concomitant]
     Dosage: 250/50 BID (INHALANT)
     Route: 055
  26. COLACE [Concomitant]
     Dosage: 100 MG, BID
     Route: 048
  27. MIDAZOLAM HCL [Concomitant]
     Dosage: 2 MG, UNK
     Route: 042
     Dates: start: 20070615
  28. MANNITOL [Concomitant]
     Dosage: 162 ML, UNK
     Route: 042
     Dates: start: 20070615
  29. TRASYLOL [Suspect]
     Indication: TRICUSPID VALVE REPLACEMENT
     Dosage: 200 ML (INITAL DOSE)
     Route: 042
     Dates: start: 20070615, end: 20070615
  30. MILRINONE [Concomitant]
     Dosage: 20 MG, UNK
     Route: 042
     Dates: start: 20070615
  31. CEFAZOLIN [Concomitant]
     Dosage: 1 G, UNK
     Route: 042
     Dates: start: 20070615
  32. SPIRONOLACTONE [Concomitant]
     Dosage: 12.5 MG, BID
     Route: 048
  33. ATIVAN [Concomitant]
     Dosage: 1 MG, HS
     Route: 048
  34. FUROSEMIDE [Concomitant]
     Dosage: 100 MG-1000 G
     Route: 042
     Dates: start: 20070615

REACTIONS (13)
  - STRESS [None]
  - RENAL INJURY [None]
  - UNEVALUABLE EVENT [None]
  - INJURY [None]
  - EMOTIONAL DISTRESS [None]
  - ANXIETY [None]
  - PAIN [None]
  - FEAR [None]
  - MULTI-ORGAN FAILURE [None]
  - DEATH [None]
  - RENAL FAILURE [None]
  - RENAL IMPAIRMENT [None]
  - ANHEDONIA [None]
